FAERS Safety Report 12780165 (Version 2)
Quarter: 2016Q4

REPORT INFORMATION
  Report Type: Spontaneous
  Country: US (occurrence: US)
  Receive Date: 20160926
  Receipt Date: 20161102
  Transmission Date: 20170207
  Serious: No
  Sender: FDA-Public Use
  Company Number: US-PFIZER INC-2016442492

PATIENT
  Sex: Female

DRUGS (10)
  1. MEPRON /00049601/ [Suspect]
     Active Substance: METHYLPREDNISOLONE
     Indication: LYME DISEASE
     Dosage: UNK UNK, 1X/DAY (AT LUNCH)
  2. ESTRADIOL. [Concomitant]
     Active Substance: ESTRADIOL
     Dosage: UNK UNK, 1X/DAY (AT LUNCH)
  3. CLINDAMYCIN PHOSPHATE. [Suspect]
     Active Substance: CLINDAMYCIN PHOSPHATE
     Indication: LYME DISEASE
     Dosage: UNK UNK, 1X/DAY (AT LUNCH)
  4. MELOXICAM. [Concomitant]
     Active Substance: MELOXICAM
     Dosage: UNK UNK, 1X/DAY (AT LUNCH)
  5. CIPRO [Suspect]
     Active Substance: CIPROFLOXACIN HYDROCHLORIDE
     Indication: LYME DISEASE
     Dosage: UNK UNK, 1X/DAY (AT LUNCH)
  6. RIFAMPIN. [Suspect]
     Active Substance: RIFAMPIN
     Indication: LYME DISEASE
     Dosage: UNK UNK, 1X/DAY (AT LUNCH)
  7. DOXYCYCLINE. [Concomitant]
     Active Substance: DOXYCYCLINE
     Dosage: UNK UNK, 1X/DAY (AT LUNCH)
  8. VFEND [Suspect]
     Active Substance: VORICONAZOLE
     Indication: LYME DISEASE
     Dosage: 200 MG, UNK
     Dates: start: 2012, end: 2014
  9. AZITHROMYCIN ANHYDROUS. [Suspect]
     Active Substance: AZITHROMYCIN ANHYDROUS
     Indication: LYME DISEASE
     Dosage: UNK UNK, 1X/DAY (AT LUNCH)
  10. FLAGYL [Suspect]
     Active Substance: METRONIDAZOLE\METRONIDAZOLE HYDROCHLORIDE
     Indication: LYME DISEASE
     Dosage: UNK UNK, 1X/DAY (AT LUNCH)

REACTIONS (1)
  - Product use issue [Unknown]
